FAERS Safety Report 6634566-8 (Version None)
Quarter: 2010Q1

REPORT INFORMATION
  Report Type: 
  Country: None (occurrence: None)
  Receive Date: 20100225
  Receipt Date: 20090114
  Transmission Date: 20100710
  Serious: Yes (Other)
  Sender: FDA-Public Use
  Company Number: 592801

PATIENT
  Age: 18 Year
  Sex: Male
  Weight: 65.8 kg

DRUGS (2)
  1. ACCUTANE [Suspect]
     Indication: ACNE
     Dosage: 40 MG 1 PER DAY
     Dates: start: 20021218, end: 20030514
  2. AMNESTEEM [Suspect]
     Indication: ACNE
     Dosage: 40 MG DAILY
     Dates: start: 20030514, end: 20030710

REACTIONS (15)
  - ANXIETY [None]
  - ASPARTATE AMINOTRANSFERASE INCREASED [None]
  - BLOOD ALBUMIN INCREASED [None]
  - BLOOD LACTATE DEHYDROGENASE INCREASED [None]
  - BLOOD TRIGLYCERIDES INCREASED [None]
  - COLITIS [None]
  - DEPRESSION [None]
  - DRY SKIN [None]
  - DYSTHYMIC DISORDER [None]
  - FATIGUE [None]
  - INFLAMMATORY BOWEL DISEASE [None]
  - LIP DRY [None]
  - MUSCLE FATIGUE [None]
  - RED BLOOD CELL COUNT INCREASED [None]
  - SINUSITIS [None]
